FAERS Safety Report 4889270-3 (Version None)
Quarter: 2006Q1

REPORT INFORMATION
  Report Type: 
  Country: None (occurrence: None)
  Receive Date: 20060124
  Receipt Date: 20060117
  Transmission Date: 20060701
  Serious: Yes (Other)
  Sender: FDA-Public Use
  Company Number: US-JNJFOC-20060103554

PATIENT
  Sex: Male
  Weight: 44.91 kg

DRUGS (4)
  1. CHILDREN'S MOTRIN COLD GRAPE ORAL [Suspect]
     Route: 048
  2. CHILDREN'S MOTRIN COLD GRAPE ORAL [Suspect]
     Indication: HEADACHE
     Route: 048
  3. CHILDREN'S MOTRIN COLD GRAPE ORAL [Suspect]
     Dosage: 2 TSPN. PO ONCE WITH FOOD
     Route: 048
  4. FLINTSTONE VITAMINS [Concomitant]

REACTIONS (5)
  - APHASIA [None]
  - CHOKING [None]
  - LETHARGY [None]
  - PETIT MAL EPILEPSY [None]
  - STUPOR [None]
